FAERS Safety Report 10417596 (Version 1)
Quarter: 2014Q3

REPORT INFORMATION
  Report Type: Spontaneous
  Country: CA (occurrence: CA)
  Receive Date: 20140829
  Receipt Date: 20140829
  Transmission Date: 20150326
  Serious: Yes (Hospitalization)
  Sender: FDA-Public Use
  Company Number: CA-ASTRAZENECA-2014SE62990

PATIENT
  Age: 69 Year
  Sex: Female

DRUGS (6)
  1. CARVEDILOL. [Concomitant]
     Active Substance: CARVEDILOL
     Dates: start: 20140812
  2. COVERSIL [Concomitant]
  3. CRESTOR [Suspect]
     Active Substance: ROSUVASTATIN CALCIUM
     Indication: MYOCARDIAL INFARCTION
     Route: 048
     Dates: start: 20140812
  4. BRILINTA [Suspect]
     Active Substance: TICAGRELOR
     Indication: MYOCARDIAL INFARCTION
     Route: 048
     Dates: start: 20140812, end: 201408
  5. LANSOPRAZOLE. [Concomitant]
     Active Substance: LANSOPRAZOLE
  6. DUOTRAV [Concomitant]
     Active Substance: TIMOLOL\TRAVOPROST
     Indication: GLAUCOMA

REACTIONS (1)
  - Epistaxis [Unknown]

NARRATIVE: CASE EVENT DATE: 20140820
